FAERS Safety Report 5067507-8 (Version None)
Quarter: 2006Q3

REPORT INFORMATION
  Report Type: 
  Country: None (occurrence: None)
  Receive Date: 20060728
  Receipt Date: 20060712
  Transmission Date: 20061208
  Serious: Yes (Hospitalization)
  Sender: FDA-Public Use
  Company Number: US200607002432

PATIENT
  Sex: Male
  Weight: 91.2 kg

DRUGS (1)
  1. ZYPREXA [Suspect]
     Indication: NERVOUSNESS

REACTIONS (3)
  - CHEST PAIN [None]
  - DIABETES MELLITUS [None]
  - HAEMORRHAGE [None]
